FAERS Safety Report 7635133-X (Version None)
Quarter: 2011Q3

REPORT INFORMATION
  Report Type: 
  Country: None (occurrence: None)
  Receive Date: 20110726
  Receipt Date: 20110704
  Transmission Date: 20111222
  Serious: Yes (Death, Hospitalization, Other)
  Sender: FDA-Public Use
  Company Number: PHHO2011PL10144

PATIENT
  Sex: Male
  Weight: 87 kg

DRUGS (5)
  1. CHLORPROTHIXEN [Concomitant]
  2. AFINITOR [Suspect]
     Indication: TUBEROUS SCLEROSIS
     Dosage: CODE NOT BROKEN
     Route: 048
     Dates: start: 20100907, end: 20110405
  3. RAD001 [Suspect]
     Indication: TUBEROUS SCLEROSIS
     Dosage: 10 MG, QD
     Route: 048
     Dates: start: 20110510, end: 20110526
  4. BLINDED NO TREATMENT RECEIVED [Suspect]
     Indication: TUBEROUS SCLEROSIS
     Dosage: CODE NOT BROKEN
     Route: 048
     Dates: start: 20100907, end: 20110405
  5. PLACEBO [Suspect]
     Indication: TUBEROUS SCLEROSIS
     Dosage: CODE NOT BROKEN
     Route: 048
     Dates: start: 20100907, end: 20110405

REACTIONS (4)
  - HYPERTENSION [None]
  - HAEMOPTYSIS [None]
  - DISEASE PROGRESSION [None]
  - DYSPLASIA [None]
